FAERS Safety Report 15789295 (Version 5)
Quarter: 2020Q3

REPORT INFORMATION
  Report Type: Report from Study
  Country: None (occurrence: JP)
  Receive Date: 20190104
  Receipt Date: 20200925
  Transmission Date: 20201102
  Serious: Yes (Hospitalization, Other)
  Sender: FDA-Public Use
  Company Number: JP-ABBVIE-19P-087-2612721-00

PATIENT
  Age: 74 Year
  Sex: Male

DRUGS (1)
  1. LEUPRORELIN [Suspect]
     Active Substance: LEUPROLIDE ACETATE
     Indication: BULBOSPINAL MUSCULAR ATROPHY CONGENITAL
     Dosage: 11.25 MG, Q3MONTHS
     Route: 058
     Dates: start: 20171115

REACTIONS (5)
  - Fall [Unknown]
  - Rhabdomyolysis [Recovered/Resolved]
  - Accident [Recovered/Resolved]
  - Tibia fracture [Recovering/Resolving]
  - Ankle fracture [Recovered/Resolved]

NARRATIVE: CASE EVENT DATE: 20180627
